FAERS Safety Report 11821677 (Version 1)
Quarter: 2015Q4

REPORT INFORMATION
  Report Type: Spontaneous
  Country: US (occurrence: US)
  Receive Date: 20151210
  Receipt Date: 20151210
  Transmission Date: 20160305
  Serious: No
  Sender: FDA-Public Use
  Company Number: US-JNJFOC-20150412421

PATIENT
  Sex: Female

DRUGS (12)
  1. FERROUS SULFATE [Concomitant]
     Active Substance: FERROUS SULFATE\FERROUS SULFATE, DRIED
  2. RISPERIDONE. [Concomitant]
     Active Substance: RISPERIDONE
  3. VITAMIN C [Concomitant]
     Active Substance: ASCORBIC ACID
  4. DEPAKOTE [Concomitant]
     Active Substance: DIVALPROEX SODIUM
  5. RANITIDINE [Concomitant]
     Active Substance: RANITIDINE\RANITIDINE HYDROCHLORIDE
  6. ALLEGRA [Concomitant]
     Active Substance: FEXOFENADINE HYDROCHLORIDE
  7. VITAMIN D [Concomitant]
     Active Substance: CHOLECALCIFEROL
  8. IMBRUVICA [Suspect]
     Active Substance: IBRUTINIB
     Indication: CHRONIC LYMPHOCYTIC LEUKAEMIA
     Route: 048
     Dates: start: 20150303
  9. SYNTHROID [Concomitant]
     Active Substance: LEVOTHYROXINE SODIUM
  10. CRANBERRY EXTRACT [Concomitant]
     Active Substance: CRANBERRY JUICE
  11. CALCIUM [Concomitant]
     Active Substance: CALCIUM
  12. ASPIRIN. [Concomitant]
     Active Substance: ASPIRIN

REACTIONS (1)
  - Skin ulcer [Recovering/Resolving]
